FAERS Safety Report 9650875 (Version 3)
Quarter: 2014Q2

REPORT INFORMATION
  Report Type: Spontaneous
  Country: US (occurrence: US)
  Receive Date: 20131029
  Receipt Date: 20140403
  Transmission Date: 20141212
  Serious: No
  Sender: FDA-Public Use
  Company Number: US-PFIZER INC-2013307496

PATIENT
  Age: 43 Year
  Sex: Female
  Weight: 68.03 kg

DRUGS (5)
  1. CHANTIX [Suspect]
     Indication: SMOKING CESSATION THERAPY
     Dosage: UNK
     Route: 048
     Dates: start: 20130210, end: 2013
  2. CHANTIX [Suspect]
     Dosage: 0.5 MG, DAILY
     Route: 048
     Dates: start: 20131002, end: 201310
  3. CHANTIX [Suspect]
     Dosage: 1 MG, 2X/DAY
     Route: 048
     Dates: start: 201310, end: 20131024
  4. DYAZIDE [Concomitant]
     Indication: BLOOD PRESSURE ABNORMAL
     Dosage: HYDROCHLOROTHIAZIDE 37.5 MG, TRIAMTERENE 25 MG, DAILY
     Dates: start: 20100617
  5. FLONASE [Concomitant]
     Indication: HYPERSENSITIVITY
     Dosage: 2 SPRAYS EACH NOSTRIL
     Route: 045
     Dates: start: 20131226

REACTIONS (35)
  - Dyspnoea [Recovered/Resolved]
  - Chest discomfort [Recovering/Resolving]
  - Head discomfort [Not Recovered/Not Resolved]
  - Pain [Recovering/Resolving]
  - Chest pain [Unknown]
  - Nausea [Unknown]
  - Vomiting [Unknown]
  - Pyrexia [Unknown]
  - Chills [Unknown]
  - Wheezing [Unknown]
  - Cough [Unknown]
  - Nocturia [Unknown]
  - Arthralgia [Unknown]
  - Inflammation [Unknown]
  - Swelling [Unknown]
  - Rash [Unknown]
  - Polyuria [Unknown]
  - Polydipsia [Unknown]
  - Contusion [Unknown]
  - Petechiae [Unknown]
  - Musculoskeletal stiffness [Unknown]
  - Emotional distress [Unknown]
  - Anxiety [Unknown]
  - Conjunctivitis [Unknown]
  - Rhonchi [Unknown]
  - Stridor [Unknown]
  - Grunting [Unknown]
  - Cardiac murmur [Unknown]
  - Heart sounds abnormal [Unknown]
  - Arrhythmia [Unknown]
  - Oedema [Unknown]
  - Dyspnoea exertional [Unknown]
  - Dehydration [Unknown]
  - Speech disorder [Unknown]
  - Nasal flaring [Unknown]
